FAERS Safety Report 8151064-3 (Version None)
Quarter: 2012Q1

REPORT INFORMATION
  Report Type: 
  Country: None (occurrence: None)
  Receive Date: 20120220
  Receipt Date: 20120216
  Transmission Date: 20120608
  Serious: Yes (Disabling)
  Sender: FDA-Public Use
  Company Number: US-MERCK-1112USA03023

PATIENT
  Age: 68 Year
  Sex: Female

DRUGS (6)
  1. FOSAMAX [Suspect]
     Indication: OSTEOPOROSIS
     Route: 048
     Dates: start: 20000101, end: 20060226
  2. FOSAMAX [Suspect]
     Indication: OSTEOPOROSIS PROPHYLAXIS
     Route: 048
     Dates: start: 20000101, end: 20060226
  3. MULTI-VITAMINS [Concomitant]
     Route: 048
  4. BONIVA [Suspect]
     Indication: OSTEOPOROSIS PROPHYLAXIS
     Route: 065
     Dates: start: 20060331, end: 20100912
  5. BONIVA [Suspect]
     Indication: OSTEOPOROSIS
     Route: 065
     Dates: start: 20060331, end: 20100912
  6. VITAMIN D (UNSPECIFIED) [Concomitant]
     Route: 048
     Dates: start: 20110101

REACTIONS (6)
  - HYPOTHYROIDISM [None]
  - FEMUR FRACTURE [None]
  - IMPAIRED HEALING [None]
  - RIB FRACTURE [None]
  - LOW TURNOVER OSTEOPATHY [None]
  - FALL [None]
